FAERS Safety Report 6651757-0 (Version None)
Quarter: 2010Q1

REPORT INFORMATION
  Report Type: 
  Country: None (occurrence: None)
  Receive Date: 20100322
  Receipt Date: 20100316
  Transmission Date: 20100710
  Serious: Yes (Other)
  Sender: FDA-Public Use
  Company Number: 2010SP016246

PATIENT
  Age: 17 Year
  Sex: Female
  Weight: 69 kg

DRUGS (1)
  1. MERCILON CONTI (DESOGESTREL/ETHINYLESTRADIOL /00570801/) [Suspect]
     Indication: MENSTRUAL DISORDER
     Dosage: PO
     Route: 048
     Dates: start: 20091001

REACTIONS (3)
  - ABNORMAL WITHDRAWAL BLEEDING [None]
  - BENIGN BREAST NEOPLASM [None]
  - OFF LABEL USE [None]
